FAERS Safety Report 9788760 (Version 2)
Quarter: 2013Q4

REPORT INFORMATION
  Report Type: Spontaneous
  Country: US (occurrence: US)
  Receive Date: 20131230
  Receipt Date: 20131230
  Transmission Date: 20140711
  Serious: Yes (Death, Other)
  Sender: FDA-Public Use
  Company Number: PHHY2013US141688

PATIENT
  Age: 85 Year
  Sex: Male

DRUGS (9)
  1. BACLOFEN INTRATHECAL [Suspect]
     Indication: MUSCLE SPASTICITY
     Dosage: UNK UKN, UNK
     Route: 037
  2. BACLOFEN INTRATHECAL [Suspect]
     Dosage: 100 UG/ML, (4.80 MCG/DAY )
     Route: 037
  3. BACLOFEN INTRATHECAL [Suspect]
     Dosage: UNK UKN, UNK
     Route: 037
  4. BACLOFEN [Suspect]
     Dosage: 3 DF, DAILY
     Route: 048
  5. GABAPENTIN [Suspect]
     Indication: NEURALGIA
     Dosage: UNK UKN, UNK
  6. GABAPENTIN [Suspect]
     Dosage: 300 MG, DAILY
  7. REQUIP [Suspect]
     Indication: MUSCLE SPASMS
  8. EFFEXOR [Suspect]
  9. PROZAC [Suspect]

REACTIONS (11)
  - Cardiac failure congestive [Fatal]
  - Neuropathy peripheral [Fatal]
  - Pneumonia [Fatal]
  - Paraparesis [Fatal]
  - Oedema peripheral [Fatal]
  - Neuralgia [Fatal]
  - Performance status decreased [Fatal]
  - Hypertonia [Fatal]
  - Muscular weakness [Fatal]
  - Muscle spasms [Fatal]
  - No therapeutic response [Fatal]
